FAERS Safety Report 16904179 (Version 3)
Quarter: 2019Q4

REPORT INFORMATION
  Report Type: Report from Study
  Country: IT (occurrence: IT)
  Receive Date: 20191010
  Receipt Date: 20191017
  Transmission Date: 20200122
  Serious: Yes (Hospitalization, Other)
  Sender: FDA-Public Use
  Company Number: IT-PFIZER INC-2019435358

PATIENT
  Age: 50 Year
  Sex: Female

DRUGS (5)
  1. MINIAS [Suspect]
     Active Substance: LORMETAZEPAM
     Indication: DRUG ABUSE
     Dosage: 30 DF, TOTAL
     Route: 048
     Dates: start: 20190916, end: 20190916
  2. FELISON [Suspect]
     Active Substance: FLURAZEPAM MONOHYDROCHLORIDE
     Indication: DRUG ABUSE
     Dosage: 8 DF, TOTAL
     Route: 048
     Dates: start: 20190916, end: 20190916
  3. TRIATEC (RAMIPRIL) [Suspect]
     Active Substance: RAMIPRIL
     Indication: DRUG ABUSE
     Dosage: 16 DF, TOTAL
     Route: 048
     Dates: start: 20190916, end: 20190916
  4. HALCION [Suspect]
     Active Substance: TRIAZOLAM
     Indication: DRUG ABUSE
     Dosage: 20 DF, TOTAL
     Route: 048
     Dates: start: 20190916, end: 20190916
  5. EN [Suspect]
     Active Substance: DELORAZEPAM
     Indication: DRUG ABUSE
     Dosage: 40 ML, TOTAL
     Route: 048
     Dates: start: 20190916, end: 20190916

REACTIONS (4)
  - Drug abuse [Recovering/Resolving]
  - Intentional overdose [Recovering/Resolving]
  - Intentional self-injury [Recovering/Resolving]
  - Hypotension [Recovering/Resolving]

NARRATIVE: CASE EVENT DATE: 20190916
